FAERS Safety Report 12332156 (Version 3)
Quarter: 2016Q3

REPORT INFORMATION
  Report Type: Spontaneous
  Country: DK (occurrence: DK)
  Receive Date: 20160504
  Receipt Date: 20160809
  Transmission Date: 20161109
  Serious: Yes (Death, Hospitalization)
  Sender: FDA-Public Use
  Company Number: DK-FRESENIUS KABI-FK201602357

PATIENT
  Age: 60 Year
  Sex: Female

DRUGS (9)
  1. VANCOMYCIN KABI 1000MG [Suspect]
     Active Substance: VANCOMYCIN HYDROCHLORIDE
     Indication: UROSEPSIS
     Route: 042
     Dates: start: 20160326, end: 20160329
  2. FURIX [Concomitant]
     Active Substance: FUROSEMIDE
     Indication: DIURETIC THERAPY
     Dates: start: 201602, end: 20160331
  3. PANTOPRAZOL ACTAVIS [Concomitant]
     Active Substance: PANTOPRAZOLE SODIUM
     Indication: PRODUCT USED FOR UNKNOWN INDICATION
     Dates: start: 20160310
  4. ALDACTONE [Concomitant]
     Active Substance: SPIRONOLACTONE
     Indication: PRODUCT USED FOR UNKNOWN INDICATION
     Dates: start: 20160324, end: 20160331
  5. FLUCONAZOLE. [Suspect]
     Active Substance: FLUCONAZOLE
     Indication: FUNGAL INFECTION
     Route: 048
     Dates: start: 20160329, end: 20160401
  6. MEROPENEM HOSPIRA [Suspect]
     Active Substance: MEROPENEM
     Indication: UROSEPSIS
     Route: 042
     Dates: start: 20160320, end: 20160329
  7. KALEORID [Concomitant]
     Active Substance: POTASSIUM CHLORIDE
     Indication: PRODUCT USED FOR UNKNOWN INDICATION
  8. THIAMIN [Concomitant]
     Active Substance: THIAMINE
     Indication: PRODUCT USED FOR UNKNOWN INDICATION
  9. CIPROFLOXACIN KABI (NOT SPECIFIED) [Suspect]
     Active Substance: CIPROFLOXACIN
     Indication: UROSEPSIS
     Route: 042
     Dates: start: 20160318, end: 20160401

REACTIONS (11)
  - Hypotension [Not Recovered/Not Resolved]
  - Endotracheal intubation [Not Recovered/Not Resolved]
  - Blister [Not Recovered/Not Resolved]
  - Dialysis [Not Recovered/Not Resolved]
  - Toxic epidermal necrolysis [Fatal]
  - Renal failure [Fatal]
  - Acidosis [Not Recovered/Not Resolved]
  - Cardiovascular insufficiency [Fatal]
  - Fluid overload [Not Recovered/Not Resolved]
  - Hepatic failure [Fatal]
  - Rash pruritic [Not Recovered/Not Resolved]

NARRATIVE: CASE EVENT DATE: 20150405
